FAERS Safety Report 21655477 (Version 2)
Quarter: 2022Q4

REPORT INFORMATION
  Report Type: Report from Study
  Country: BR (occurrence: BR)
  Receive Date: 20221129
  Receipt Date: 20221201
  Transmission Date: 20230113
  Serious: Yes (Other)
  Sender: FDA-Public Use
  Company Number: BR-002147023-NVSC2022BR275331

PATIENT
  Age: 86 Year
  Sex: Male

DRUGS (1)
  1. AMLODIPINE\VALSARTAN [Suspect]
     Active Substance: AMLODIPINE\VALSARTAN
     Indication: Product used for unknown indication
     Dosage: 1 DOSAGE FORM (STARTED 15 YEARS AGO)
     Route: 065

REACTIONS (2)
  - Dementia Alzheimer^s type [Unknown]
  - Dementia [Unknown]
